FAERS Safety Report 10370397 (Version 1)
Quarter: 2014Q3

REPORT INFORMATION
  Report Type: Spontaneous
  Country: US (occurrence: None)
  Receive Date: 20140805
  Receipt Date: 20140805
  Transmission Date: 20150326
  Serious: Yes (Other)
  Sender: FDA-Public Use
  Company Number: US-H14001-14-00300

PATIENT
  Age: 50 Year
  Sex: Female

DRUGS (2)
  1. METHYLPHENIDATE [Concomitant]
     Active Substance: METHYLPHENIDATE
  2. MODAFINIL. [Suspect]
     Active Substance: MODAFINIL
     Indication: NARCOLEPSY
     Dates: start: 201103

REACTIONS (4)
  - Pulmonary arterial hypertension [None]
  - Somnolence [None]
  - Palpitations [None]
  - Condition aggravated [None]
